FAERS Safety Report 8485137-2 (Version None)
Quarter: 2012Q3

REPORT INFORMATION
  Report Type: 
  Country: None (occurrence: None)
  Receive Date: 20120703
  Receipt Date: 20120625
  Transmission Date: 20120928
  Serious: Yes (Other)
  Sender: FDA-Public Use
  Company Number: US-BAYER-2012-063911

PATIENT
  Age: 25 Year
  Sex: Female
  Weight: 172 kg

DRUGS (14)
  1. YASMIN [Suspect]
  2. BACTRIM DS [Concomitant]
     Dosage: UNK UNK, BID
     Dates: start: 20111230
  3. TRIAMCINOLONE ACETONIDE [Concomitant]
     Dosage: 0.1% APPLY 2-3 TIMES A DAY AS NEEDED
     Route: 061
     Dates: start: 20120214, end: 20120423
  4. CLINDAMYCIN [Concomitant]
     Dosage: 300 MG, TID
     Route: 048
     Dates: start: 20120315
  5. SYNTHROID [Concomitant]
     Dosage: 175 MCG DAY
     Route: 048
     Dates: start: 20120222, end: 20120223
  6. NAPROXEN (ALEVE) [Concomitant]
     Dosage: UNK UNK, BID
     Route: 048
     Dates: start: 20120214
  7. DROSPIRENONE AND ETHINYL ESTRADIOL [Suspect]
  8. VENTOLIN HFA [Concomitant]
     Dosage: 90 MCG, 2 PUFFS EVERY 4-6 HOURS AS NEEDED ORAL INHALED
     Dates: start: 20120214, end: 20120423
  9. MUCINEX [Concomitant]
     Dosage: UNK
     Route: 048
     Dates: start: 20120214
  10. VITAMIN B6 [Concomitant]
     Dosage: 100 MG, BID
     Route: 048
     Dates: start: 20120222
  11. AMOXICILLIN [Concomitant]
     Dosage: 500 MG, BID
     Route: 048
     Dates: start: 20120214
  12. SYNTHROID [Concomitant]
     Dosage: 150MCG DAY
     Route: 048
     Dates: start: 20120214
  13. RETIN-A [Concomitant]
     Indication: ACNE
     Dosage: 0.025% 1 PEA SIZED AMOUNT
     Route: 061
     Dates: start: 20120214, end: 20120423
  14. BENZAMYCIN [Concomitant]
     Indication: ACNE
     Dosage: 3%-5%
     Route: 061
     Dates: start: 20120214, end: 20120423

REACTIONS (1)
  - DEEP VEIN THROMBOSIS [None]
